FAERS Safety Report 17545718 (Version 4)
Quarter: 2020Q3

REPORT INFORMATION
  Report Type: Spontaneous
  Country: US (occurrence: US)
  Receive Date: 20200316
  Receipt Date: 20200726
  Transmission Date: 20201102
  Serious: No
  Sender: FDA-Public Use
  Company Number: US-AMGEN-USASP2020041530

PATIENT
  Age: 75 Year
  Sex: Female
  Weight: 62.6 kg

DRUGS (4)
  1. METHOTREXATE. [Concomitant]
     Active Substance: METHOTREXATE
     Indication: HORMONE RECEPTOR POSITIVE BREAST CANCER
     Dosage: 64.75 MILLIGRAM, Q3WK
     Dates: start: 20200113, end: 20200513
  2. NEULASTA [Suspect]
     Active Substance: PEGFILGRASTIM
     Indication: NEUTROPENIA
     Dosage: 6 MILLIGRAM, ONE TIME DOSE
     Route: 058
     Dates: start: 20200302
  3. ADRUCIL [Concomitant]
     Active Substance: FLUOROURACIL
     Indication: HORMONE RECEPTOR POSITIVE BREAST CANCER
     Dosage: 972 MILLIGRAM, Q3WK
     Dates: start: 20200113, end: 20200513
  4. CYTOXAN [Concomitant]
     Active Substance: CYCLOPHOSPHAMIDE
     Indication: HORMONE RECEPTOR POSITIVE BREAST CANCER
     Dosage: 1000 MILLIGRAM, Q3WK
     Dates: start: 20200113, end: 20200513

REACTIONS (3)
  - Device use error [Unknown]
  - Device malfunction [Unknown]
  - Injury [Unknown]

NARRATIVE: CASE EVENT DATE: 202003
